FAERS Safety Report 15342427 (Version 2)
Quarter: 2019Q2

REPORT INFORMATION
  Report Type: Spontaneous
  Country: CO (occurrence: CO)
  Receive Date: 20180902
  Receipt Date: 20190608
  Transmission Date: 20190711
  Serious: Yes (Hospitalization)
  Sender: FDA-Public Use
  Company Number: PHHY2018CO085046

PATIENT
  Age: 10 Year
  Sex: Male

DRUGS (1)
  1. RITALINA [Suspect]
     Active Substance: METHYLPHENIDATE HYDROCHLORIDE
     Indication: ATTENTION DEFICIT/HYPERACTIVITY DISORDER
     Dosage: 5 MG, Q5W (FIVE TIMES A WEEK (FROM MONDAY TO FRIDAY))
     Route: 048
     Dates: start: 20180630

REACTIONS (2)
  - Intussusception [Not Recovered/Not Resolved]
  - Inappropriate schedule of product administration [Unknown]

NARRATIVE: CASE EVENT DATE: 20180630
